FAERS Safety Report 23909452 (Version 1)
Quarter: 2024Q2

REPORT INFORMATION
  Report Type: Spontaneous
  Country: GB (occurrence: GB)
  Receive Date: 20240528
  Receipt Date: 20240528
  Transmission Date: 20240716
  Serious: Yes (Hospitalization)
  Sender: FDA-Public Use
  Company Number: None

PATIENT
  Age: 42 Year
  Sex: Male

DRUGS (9)
  1. ATORVASTATIN [Suspect]
     Active Substance: ATORVASTATIN
     Dosage: AT NIGHT,
     Route: 065
  2. OMEPRAZOLE [Concomitant]
     Active Substance: DONEPEZIL HYDROCHLORIDE\OMEPRAZOLE\OMEPRAZOLE MAGNESIUM
     Dosage: LAST ISSUED 06/10/2023,
  3. FERROUS FUMARATE [Concomitant]
     Active Substance: FERROUS FUMARATE
     Dosage: AT NIGHT. LAST ISSUED 07/09/2023,
  4. METFORMIN [Concomitant]
     Active Substance: METFORMIN HYDROCHLORIDE
     Dosage: 2 WITH BREAKFAST AND 2 WITH EVENING MEAL EACH DAY,
  5. CHOLECALCIFEROL [Concomitant]
     Active Substance: CHOLECALCIFEROL
     Dosage: AT NIGHT,
  6. CALCIUM CARBONATE [Concomitant]
     Active Substance: CALCIUM CARBONATE
     Dosage: AT NIGHT,
  7. GLICLAZIDE [Concomitant]
     Active Substance: GLICLAZIDE
     Dosage: INCREASED. LAST ISSUED 07/11/2023,
  8. LEVOTHYROXINE [Concomitant]
     Active Substance: LEVOTHYROXINE\LEVOTHYROXINE SODIUM
     Dosage: EACH MORNING,
  9. RAMIPRIL [Concomitant]
     Active Substance: RAMIPRIL
     Dosage: LAST ISSUED 01/11/2023,

REACTIONS (1)
  - Rhabdomyolysis [Recovered/Resolved]
